FAERS Safety Report 5581073-X (Version None)
Quarter: 2007Q4

REPORT INFORMATION
  Report Type: 
  Country: None (occurrence: None)
  Receive Date: 20071227
  Receipt Date: 20071213
  Transmission Date: 20080405
  Serious: Yes (Hospitalization)
  Sender: FDA-Public Use
  Company Number: GXKR2007US10694

PATIENT
  Age: 39 Year
  Sex: Male

DRUGS (2)
  1. LORAZEPAM (NGX)(LORAZEPAX) UNKNOWN [Suspect]
     Indication: SEDATION
     Dosage: INTRAVENOUS
  2. ESMOLOL HCL [Suspect]
     Indication: AORTIC DISORDER
     Dosage: INTRAVENOUS
     Route: 042

REACTIONS (4)
  - HAEMODIALYSIS [None]
  - METABOLIC ACIDOSIS [None]
  - POISONING [None]
  - RENAL IMPAIRMENT [None]
